FAERS Safety Report 9278739 (Version 1)
Quarter: 2013Q2

REPORT INFORMATION
  Report Type: Spontaneous
  Country: US (occurrence: None)
  Receive Date: 20130506
  Receipt Date: 20130506
  Transmission Date: 20140414
  Serious: No
  Sender: FDA-Public Use
  Company Number: None

PATIENT
  Age: 84 Year
  Sex: Female
  Weight: 68.04 kg

DRUGS (1)
  1. JANUVIA 100 MG [Suspect]
     Indication: TYPE 2 DIABETES MELLITUS
     Route: 048
     Dates: start: 20130301, end: 20130427

REACTIONS (3)
  - Urticaria [None]
  - Pruritus [None]
  - Joint swelling [None]
